FAERS Safety Report 5673534-X (Version None)
Quarter: 2008Q2

REPORT INFORMATION
  Report Type: 
  Country: None (occurrence: None)
  Receive Date: 20080225
  Receipt Date: 20071022
  Transmission Date: 20081010
  Serious: Yes (Hospitalization)
  Sender: FDA-Public Use
  Company Number: WAES 0710USA04512

PATIENT
  Age: 61 Year
  Sex: Female

DRUGS (4)
  1. ZOCOR [Suspect]
     Indication: HYPERCHOLESTEROLAEMIA
     Dosage: 80 MG/DAILY/PO ; 40 MG/DAILY/PO ; 80 MG/DAILY/PO
     Route: 048
  2. COLCHICINE UNK [Suspect]
     Dosage: 0.6 MG/BID
  3. ASPIRIN [Concomitant]
  4. HYDROCHLOROTHIAZIDE [Concomitant]

REACTIONS (1)
  - MUSCULAR WEAKNESS [None]
